FAERS Safety Report 13736310 (Version 1)
Quarter: 2017Q3

REPORT INFORMATION
  Report Type: Spontaneous
  Country: US (occurrence: US)
  Receive Date: 20170710
  Receipt Date: 20170710
  Transmission Date: 20171127
  Serious: Yes (Disabling, Other)
  Sender: FDA-Public Use
  Company Number: None

PATIENT
  Age: 68 Year
  Sex: Female
  Weight: 77.18 kg

DRUGS (2)
  1. GADOLINIUM [Suspect]
     Active Substance: GADOLINIUM
     Indication: NEOPLASM MALIGNANT
     Dates: start: 2009, end: 2011
  2. OTHER GBCAS [Suspect]
     Active Substance: GADOLINIUM

REACTIONS (21)
  - Dry eye [None]
  - Musculoskeletal chest pain [None]
  - Joint stiffness [None]
  - Muscular weakness [None]
  - Musculoskeletal disorder [None]
  - Muscle tightness [None]
  - Skin tightness [None]
  - Loss of proprioception [None]
  - Hypoaesthesia [None]
  - Balance disorder [None]
  - Oedema peripheral [None]
  - Skin burning sensation [None]
  - Cognitive disorder [None]
  - Insomnia [None]
  - Memory impairment [None]
  - Muscle atrophy [None]
  - Hypothyroidism [None]
  - Oral pain [None]
  - Feeling cold [None]
  - Visual impairment [None]
  - Pain [None]

NARRATIVE: CASE EVENT DATE: 2009
